FAERS Safety Report 24679986 (Version 1)
Quarter: 2024Q4

REPORT INFORMATION
  Report Type: Spontaneous
  Country: CN (occurrence: CN)
  Receive Date: 20241129
  Receipt Date: 20241129
  Transmission Date: 20250114
  Serious: Yes (Hospitalization, Other)
  Sender: TAKEDA
  Company Number: CN-HUTCHMED LIMITED-HMP2024CN02642

PATIENT
  Age: 84 Year
  Sex: Male
  Weight: 54 kg

DRUGS (1)
  1. FRUQUINTINIB [Suspect]
     Active Substance: FRUQUINTINIB
     Indication: Rectal cancer
     Dosage: 5 MILLIGRAM, QD
     Dates: start: 20240924, end: 20241014

REACTIONS (2)
  - Haemoglobinuria [Unknown]
  - Proteinuria [Unknown]

NARRATIVE: CASE EVENT DATE: 20241026
